FAERS Safety Report 7473756-1 (Version None)
Quarter: 2011Q2

REPORT INFORMATION
  Report Type: 
  Country: None (occurrence: None)
  Receive Date: 20110503
  Receipt Date: 20110418
  Transmission Date: 20111010
  Serious: Yes (Disabling, Other)
  Sender: FDA-Public Use
  Company Number: 2011MA004561

PATIENT
  Sex: Male

DRUGS (1)
  1. METOCLOPRAMIDE [Suspect]
     Indication: PRODUCT USED FOR UNKNOWN INDICATION
     Dates: start: 20060801, end: 20100201

REACTIONS (10)
  - INJURY [None]
  - NERVOUS SYSTEM DISORDER [None]
  - TARDIVE DYSKINESIA [None]
  - EXTRAPYRAMIDAL DISORDER [None]
  - MENTAL DISORDER [None]
  - MOVEMENT DISORDER [None]
  - ECONOMIC PROBLEM [None]
  - ACTIVITIES OF DAILY LIVING IMPAIRED [None]
  - DEFORMITY [None]
  - PAIN [None]
